FAERS Safety Report 17377096 (Version 2)
Quarter: 2020Q1

REPORT INFORMATION
  Report Type: Spontaneous
  Country: US (occurrence: US)
  Receive Date: 20200206
  Receipt Date: 20200219
  Transmission Date: 20200409
  Serious: No
  Sender: FDA-Public Use
  Company Number: US-PFIZER INC-2020048336

PATIENT
  Age: 66 Year
  Sex: Female
  Weight: 100 kg

DRUGS (2)
  1. XELJANZ [Suspect]
     Active Substance: TOFACITINIB CITRATE
     Indication: PSORIASIS
     Dosage: UNK, 2X/DAY
     Dates: end: 201911
  2. XELJANZ [Suspect]
     Active Substance: TOFACITINIB CITRATE
     Indication: PSORIATIC ARTHROPATHY

REACTIONS (1)
  - Osteoarthritis [Unknown]

NARRATIVE: CASE EVENT DATE: 20200205
